FAERS Safety Report 17273893 (Version 1)
Quarter: 2020Q1

REPORT INFORMATION
  Report Type: Spontaneous
  Country: US (occurrence: US)
  Receive Date: 20191225
  Receipt Date: 20191225
  Transmission Date: 20200409
  Serious: Yes (Hospitalization)
  Sender: FDA-Public Use
  Company Number: None

PATIENT
  Age: 12 Year
  Sex: Female
  Weight: 73.8 kg

DRUGS (6)
  1. CYTARABINE. [Suspect]
     Active Substance: CYTARABINE
     Dates: end: 20191106
  2. ONCASPAR [Suspect]
     Active Substance: PEGASPARGASE
     Dates: end: 20191104
  3. METHOTREXATE. [Suspect]
     Active Substance: METHOTREXATE
     Dates: end: 20191128
  4. PREDNISOLONE. [Suspect]
     Active Substance: PREDNISOLONE
     Dates: end: 20191203
  5. VINCRISTINE SULFATE. [Suspect]
     Active Substance: VINCRISTINE SULFATE
     Dates: end: 20191128
  6. DAUNORUBICIN [Suspect]
     Active Substance: DAUNORUBICIN
     Dates: end: 20191128

REACTIONS (12)
  - Confusional state [None]
  - Purulence [None]
  - Catheter site erythema [None]
  - Paraesthesia [None]
  - Visual acuity reduced [None]
  - Seizure [None]
  - Wound dehiscence [None]
  - Memory impairment [None]
  - Vision blurred [None]
  - Posterior reversible encephalopathy syndrome [None]
  - Eye pain [None]
  - Diplopia [None]

NARRATIVE: CASE EVENT DATE: 20191204
